FAERS Safety Report 21684484 (Version 2)
Quarter: 2022Q4

REPORT INFORMATION
  Report Type: Spontaneous
  Country: US (occurrence: US)
  Receive Date: 20221205
  Receipt Date: 20221214
  Transmission Date: 20230112
  Serious: No
  Sender: FDA-Public Use
  Company Number: US-PFIZER INC-PV202200117223

PATIENT
  Age: 69 Year
  Sex: Male

DRUGS (2)
  1. CIBINQO [Interacting]
     Active Substance: ABROCITINIB
     Dosage: UNK
  2. MELOXICAM [Interacting]
     Active Substance: MELOXICAM
     Dosage: UNK

REACTIONS (1)
  - Drug interaction [Unknown]
